FAERS Safety Report 4677696-2 (Version None)
Quarter: 2005Q2

REPORT INFORMATION
  Report Type: 
  Country: None (occurrence: None)
  Receive Date: 20050527
  Receipt Date: 20050504
  Transmission Date: 20051028
  Serious: Yes (Hospitalization)
  Sender: FDA-Public Use
  Company Number: 6014627

PATIENT
  Age: 76 Year
  Sex: Female

DRUGS (4)
  1. BISOPROLOL (CHF) (TABLET) (BISOPROLOL) [Suspect]
     Indication: CARDIAC FAILURE CONGESTIVE
     Dosage: 10,000 MG (10 MG, 1 IN 1 D)
     Route: 048
     Dates: start: 20040401
  2. ENALAPRIL MALEATE [Suspect]
     Dosage: 20,000 MG (10 MG, 2 IN 1 D)
     Route: 048
     Dates: start: 20041011
  3. FUROSEMIDE [Concomitant]
  4. SINTROM [Concomitant]

REACTIONS (9)
  - ASTHMA [None]
  - CARDIAC FAILURE [None]
  - CARDIOMEGALY [None]
  - CONDITION AGGRAVATED [None]
  - CREPITATIONS [None]
  - GENERAL PHYSICAL HEALTH DETERIORATION [None]
  - HYPOTENSION [None]
  - PNEUMONIA [None]
  - RENAL FAILURE [None]
